FAERS Safety Report 9561530 (Version 3)
Quarter: 2013Q4

REPORT INFORMATION
  Report Type: Spontaneous
  Country: PT (occurrence: PT)
  Receive Date: 20130927
  Receipt Date: 20131011
  Transmission Date: 20140711
  Serious: Yes (Hospitalization)
  Sender: FDA-Public Use
  Company Number: PT-PFIZER INC-2013275164

PATIENT
  Age: 66 Year
  Sex: Male

DRUGS (2)
  1. CISPLATIN [Suspect]
     Indication: SMALL CELL LUNG CANCER METASTATIC
     Dosage: 80 MG/M2 DAY 1 (21 DAYS)
     Route: 065
  2. ETOPOSIDE [Suspect]
     Indication: SMALL CELL LUNG CANCER METASTATIC
     Dosage: 120 MG/M2 DAY 1-3 (21 DAYS)
     Route: 065

REACTIONS (2)
  - Pneumonia [Recovering/Resolving]
  - Neutropenia [Recovering/Resolving]
